FAERS Safety Report 15242641 (Version 1)
Quarter: 2018Q3

REPORT INFORMATION
  Report Type: Report from Study
  Country: FR (occurrence: FR)
  Receive Date: 20180806
  Receipt Date: 20180806
  Transmission Date: 20181010
  Serious: Yes (Life-Threatening, Other)
  Sender: FDA-Public Use
  Company Number: FR-TEVA-2018-FR-935255

PATIENT
  Sex: Male

DRUGS (9)
  1. DEXAMETHASONE. [Interacting]
     Active Substance: DEXAMETHASONE
     Dosage: 15.5 MILLIGRAM DAILY; 1X/DAY:QD
     Route: 048
     Dates: start: 20171211, end: 20171217
  2. DAUNORUBICIN [Interacting]
     Active Substance: DAUNORUBICIN
     Indication: ACUTE LYMPHOCYTIC LEUKAEMIA
     Dosage: 46.5 MG, UNK
     Route: 042
     Dates: start: 20171218, end: 20171226
  3. CYTARABINE. [Interacting]
     Active Substance: CYTARABINE
     Indication: ACUTE LYMPHOCYTIC LEUKAEMIA
     Dosage: 30 MILLIGRAM DAILY;
     Route: 037
     Dates: start: 20171214
  4. PEGASPARGASE [Interacting]
     Active Substance: PEGASPARGASE
     Indication: ACUTE LYMPHOCYTIC LEUKAEMIA
     Dosage: 1940 IU (INTERNATIONAL UNIT) DAILY; 1940 IU, 1X/DAY:QD
     Route: 042
     Dates: start: 20171214
  5. VINCRISTINE [Interacting]
     Active Substance: VINCRISTINE
     Indication: ACUTE LYMPHOCYTIC LEUKAEMIA
     Dosage: 2 MG, UNK
     Route: 042
     Dates: start: 20171211, end: 20171226
  6. HYDROCORTISONE. [Interacting]
     Active Substance: HYDROCORTISONE
     Indication: ACUTE LYMPHOCYTIC LEUKAEMIA
     Dosage: 15 MILLIGRAM DAILY;
     Route: 037
     Dates: start: 20171214
  7. DAUNORUBICIN [Interacting]
     Active Substance: DAUNORUBICIN
     Dosage: 45.3 MG, 1X/DAY:QD
     Route: 042
  8. METHOTREXATE. [Suspect]
     Active Substance: METHOTREXATE
     Indication: ACUTE LYMPHOCYTIC LEUKAEMIA
     Dosage: 15 MILLIGRAM DAILY; 15 MG, 1X/DAY:QD
     Route: 037
     Dates: start: 20171214
  9. DEXAMETHASONE. [Interacting]
     Active Substance: DEXAMETHASONE
     Indication: ACUTE LYMPHOCYTIC LEUKAEMIA
     Dosage: 15.5 MG, UNK
     Route: 048
     Dates: start: 20171226, end: 20180101

REACTIONS (2)
  - Potentiating drug interaction [Recovering/Resolving]
  - Cerebrovascular accident [Recovering/Resolving]

NARRATIVE: CASE EVENT DATE: 20180122
